FAERS Safety Report 12486218 (Version 1)
Quarter: 2016Q2

REPORT INFORMATION
  Report Type: Spontaneous
  Country: US (occurrence: US)
  Receive Date: 20160621
  Receipt Date: 20160621
  Transmission Date: 20160815
  Serious: Yes (Hospitalization, Disabling, Other)
  Sender: FDA-Public Use
  Company Number: US-009507513-1105USA03424

PATIENT
  Sex: Female
  Weight: 63.49 kg

DRUGS (9)
  1. FOSAMAX [Suspect]
     Active Substance: ALENDRONATE SODIUM
     Indication: OSTEOPENIA
  2. HORMONES (UNSPECIFIED) [Concomitant]
     Active Substance: UNSPECIFIED INGREDIENT
     Dates: start: 2001, end: 2009
  3. FOSAMAX PLUS D [Suspect]
     Active Substance: ALENDRONATE SODIUM\CHOLECALCIFEROL
     Indication: OSTEOPOROSIS
     Dosage: 70-2800 MG, QW
     Route: 048
     Dates: start: 20060203
  4. FOSAMAX [Suspect]
     Active Substance: ALENDRONATE SODIUM
     Indication: OSTEOPOROSIS
     Dosage: 70 MG, QW
     Route: 048
     Dates: start: 20090508, end: 20100224
  5. FOSAMAX [Suspect]
     Active Substance: ALENDRONATE SODIUM
     Indication: OSTEOPENIA
  6. FOSAMAX [Suspect]
     Active Substance: ALENDRONATE SODIUM
     Indication: OSTEOPOROSIS
     Dosage: 70 MG, QW
     Route: 048
     Dates: start: 20010404, end: 20100224
  7. BONIVA [Suspect]
     Active Substance: IBANDRONATE SODIUM
     Indication: OSTEOPENIA
  8. BONIVA [Suspect]
     Active Substance: IBANDRONATE SODIUM
     Indication: OSTEOPOROSIS
     Dosage: 150 MG, UNK
     Route: 048
     Dates: start: 20100225, end: 20110118
  9. FOSAMAX PLUS D [Suspect]
     Active Substance: ALENDRONATE SODIUM\CHOLECALCIFEROL
     Indication: OSTEOPENIA

REACTIONS (33)
  - Tooth disorder [Unknown]
  - Inflammatory bowel disease [Unknown]
  - External ear disorder [Unknown]
  - Hyperlipidaemia [Unknown]
  - Complication associated with device [Unknown]
  - Blood cholesterol increased [Unknown]
  - Oedema [Unknown]
  - Osteoarthritis [Unknown]
  - Stress fracture [Not Recovered/Not Resolved]
  - Tonsillar disorder [Unknown]
  - Low turnover osteopathy [Not Recovered/Not Resolved]
  - Anxiety [Unknown]
  - Arthritis [Unknown]
  - Hot flush [Recovering/Resolving]
  - Dry skin [Unknown]
  - Gastric disorder [Unknown]
  - Nausea [Unknown]
  - Stress [Unknown]
  - Visual field defect [Recovering/Resolving]
  - Cellulitis [Unknown]
  - Insomnia [Unknown]
  - Osteoarthritis [Unknown]
  - Depression [Recovering/Resolving]
  - Eustachian tube disorder [Unknown]
  - Diarrhoea [Unknown]
  - Diarrhoea [Unknown]
  - Hypertension [Unknown]
  - Femur fracture [Not Recovered/Not Resolved]
  - Tinnitus [Unknown]
  - Diarrhoea [Unknown]
  - Chest pain [Unknown]
  - Fall [Unknown]
  - Bronchitis [Unknown]

NARRATIVE: CASE EVENT DATE: 20030702
